FAERS Safety Report 6985616-0 (Version None)
Quarter: 2010Q3

REPORT INFORMATION
  Report Type: 
  Country: None (occurrence: None)
  Receive Date: 20100915
  Receipt Date: 20100909
  Transmission Date: 20110219
  Serious: Yes (Life-Threatening)
  Sender: FDA-Public Use
  Company Number: NL-BRISTOL-MYERS SQUIBB COMPANY-15282031

PATIENT
  Age: 69 Year
  Sex: Male
  Weight: 68 kg

DRUGS (4)
  1. IRBESARTAN [Suspect]
     Indication: MYOCARDIAL ISCHAEMIA
     Dates: start: 20100707
  2. ALLOPURINOL [Concomitant]
     Dates: start: 20091227
  3. ACETYLSALICYLIC ACID [Concomitant]
     Dates: start: 20080418
  4. METOPROLOL TARTRATE [Concomitant]
     Dates: start: 20090731

REACTIONS (1)
  - NARCOLEPSY [None]
